FAERS Safety Report 4581775-8 (Version None)
Quarter: 2005Q1

REPORT INFORMATION
  Report Type: 
  Country: None (occurrence: None)
  Receive Date: 20050214
  Receipt Date: 20040302
  Transmission Date: 20050727
  Serious: No
  Sender: FDA-Public Use
  Company Number: US-GLAXOSMITHKLINE-A0500705A

PATIENT
  Age: 30 Year
  Sex: Female

DRUGS (6)
  1. LAMICTAL [Suspect]
     Indication: BIPOLAR DISORDER
     Dosage: 25MG PER DAY
     Route: 048
     Dates: start: 20040217, end: 20040224
  2. KLONOPIN [Concomitant]
  3. ADDERALL 10 [Concomitant]
  4. PAXIL CR [Concomitant]
  5. SPIRONOLACTONE [Concomitant]
  6. ORAL CONTRACEPTIVES [Concomitant]

REACTIONS (8)
  - AMENORRHOEA [None]
  - ANXIETY [None]
  - ERUCTATION [None]
  - EYELID FUNCTION DISORDER [None]
  - FATIGUE [None]
  - FLATULENCE [None]
  - NAUSEA [None]
  - WEIGHT DECREASED [None]
